FAERS Safety Report 11273858 (Version 3)
Quarter: 2015Q3

REPORT INFORMATION
  Report Type: Spontaneous
  Country: CN (occurrence: CN)
  Receive Date: 20150715
  Receipt Date: 20150730
  Transmission Date: 20151125
  Serious: Yes (Hospitalization)
  Sender: FDA-Public Use
  Company Number: CN-ABBVIE-15P-035-1425119-00

PATIENT
  Age: 64 Year
  Sex: Male

DRUGS (5)
  1. TOPIRAMATE. [Concomitant]
     Active Substance: TOPIRAMATE
     Indication: PRODUCT USED FOR UNKNOWN INDICATION
     Route: 065
  2. SODIUM VALPROATE [Suspect]
     Active Substance: VALPROATE SODIUM
     Dosage: GASTRO-RESISTANT
     Route: 048
  3. SODIUM VALPROATE [Suspect]
     Active Substance: VALPROATE SODIUM
     Dosage: 750 MG AM AND 500 MG
     Route: 048
  4. SODIUM VALPROATE [Suspect]
     Active Substance: VALPROATE SODIUM
     Indication: EPILEPSY
     Dosage: GASTRO-RESISTANT
     Route: 048
  5. LAMOTRIGINE. [Suspect]
     Active Substance: LAMOTRIGINE
     Indication: EPILEPSY
     Route: 048

REACTIONS (11)
  - Drug eruption [Recovered/Resolved]
  - Eye discharge [Recovered/Resolved]
  - Erythema [Recovered/Resolved]
  - Rash maculo-papular [Recovered/Resolved]
  - Skin exfoliation [Recovered/Resolved]
  - Lip oedema [Recovered/Resolved]
  - Conjunctival hyperaemia [Recovered/Resolved]
  - Drug reaction with eosinophilia and systemic symptoms [Recovered/Resolved]
  - Skin discolouration [Recovered/Resolved]
  - Rash generalised [Recovered/Resolved]
  - Mouth ulceration [Recovered/Resolved]
